FAERS Safety Report 4861043-7 (Version None)
Quarter: 2005Q4

REPORT INFORMATION
  Report Type: 
  Country: None (occurrence: None)
  Receive Date: 20051220
  Receipt Date: 20051212
  Transmission Date: 20060501
  Serious: Yes (Other)
  Sender: FDA-Public Use
  Company Number: US-JNJFOC-20051202795

PATIENT
  Sex: Male
  Weight: 62.6 kg

DRUGS (3)
  1. REMICADE [Suspect]
     Dosage: THIRD DOSE
     Route: 042
  2. REMICADE [Suspect]
     Indication: CROHN'S DISEASE
     Route: 042
  3. ASACOL [Concomitant]
     Indication: CROHN'S DISEASE

REACTIONS (3)
  - DRUG INEFFECTIVE [None]
  - ILEAL STENOSIS [None]
  - SURGERY [None]
